FAERS Safety Report 18237660 (Version 1)
Quarter: 2020Q3

REPORT INFORMATION
  Report Type: Spontaneous
  Country: US (occurrence: US)
  Receive Date: 20200907
  Receipt Date: 20200907
  Transmission Date: 20201103
  Serious: Yes (Hospitalization)
  Sender: FDA-Public Use
  Company Number: US-ROCHE-2672758

PATIENT
  Age: 79 Year
  Sex: Male

DRUGS (4)
  1. ALECENSA [Suspect]
     Active Substance: ALECTINIB HYDROCHLORIDE
     Indication: LUNG NEOPLASM MALIGNANT
     Route: 048
     Dates: start: 20181213
  2. LISINOPRIL. [Concomitant]
     Active Substance: LISINOPRIL
  3. FINASTERIDE. [Concomitant]
     Active Substance: FINASTERIDE
  4. METFORMIN [Concomitant]
     Active Substance: METFORMIN HYDROCHLORIDE

REACTIONS (2)
  - Bone pain [Not Recovered/Not Resolved]
  - Muscle spasms [Not Recovered/Not Resolved]

NARRATIVE: CASE EVENT DATE: 20200812
